FAERS Safety Report 5835436-5 (Version None)
Quarter: 2008Q3

REPORT INFORMATION
  Report Type: 
  Country: None (occurrence: None)
  Receive Date: 20080804
  Receipt Date: 20080721
  Transmission Date: 20090109
  Serious: Yes (Hospitalization)
  Sender: FDA-Public Use
  Company Number: A-NJ2008-21326

PATIENT
  Age: 40 Year
  Sex: Female

DRUGS (2)
  1. TRACLEER [Suspect]
     Indication: PULMONARY HYPERTENSION
     Dosage: UNK, UNK, ORAL
     Route: 048
     Dates: end: 20080501
  2. AMIODARONE HCL [Suspect]
     Dosage: UNK, UNK, UNK
     Dates: start: 20071201

REACTIONS (3)
  - CONDITION AGGRAVATED [None]
  - LIVER FUNCTION TEST ABNORMAL [None]
  - RIGHT VENTRICULAR FAILURE [None]
